FAERS Safety Report 14479004 (Version 2)
Quarter: 2018Q2

REPORT INFORMATION
  Report Type: Spontaneous
  Country: ES (occurrence: ES)
  Receive Date: 20180202
  Receipt Date: 20180424
  Transmission Date: 20180711
  Serious: Yes (Other)
  Sender: FDA-Public Use
  Company Number: ES-AUROBINDO-AUR-APL-2018-004028

PATIENT

DRUGS (6)
  1. FLECAINIDE [Suspect]
     Active Substance: FLECAINIDE
     Indication: HYDROPS FOETALIS
  2. FLECAINIDE [Suspect]
     Active Substance: FLECAINIDE
     Indication: TACHYCARDIA FOETAL
  3. DIGOXIN. [Suspect]
     Active Substance: DIGOXIN
     Indication: VENTRICULAR DYSFUNCTION
     Dosage: UNK
     Route: 064
  4. DIGOXIN. [Suspect]
     Active Substance: DIGOXIN
     Indication: TACHYCARDIA FOETAL
  5. FLECAINIDE [Suspect]
     Active Substance: FLECAINIDE
     Indication: VENTRICULAR DYSFUNCTION
     Dosage: UNK
     Route: 064
  6. DIGOXIN. [Suspect]
     Active Substance: DIGOXIN
     Indication: HYDROPS FOETALIS

REACTIONS (3)
  - Atrioventricular block first degree [Unknown]
  - Premature baby [Unknown]
  - Foetal exposure during pregnancy [Unknown]
